FAERS Safety Report 21655040 (Version 1)
Quarter: 2022Q4

REPORT INFORMATION
  Report Type: Spontaneous
  Country: ES (occurrence: ES)
  Receive Date: 20221129
  Receipt Date: 20221129
  Transmission Date: 20230112
  Serious: Yes (Hospitalization)
  Sender: FDA-Public Use
  Company Number: None

PATIENT
  Age: 60 Year
  Sex: Female

DRUGS (11)
  1. CLONAZEPAM [Suspect]
     Active Substance: CLONAZEPAM
     Dosage: 1/2-0-0-1/2
     Route: 048
     Dates: start: 20040709
  2. VENLAFAXINE [Suspect]
     Active Substance: VENLAFAXINE HYDROCHLORIDE
     Dosage: 75MG C/24H?DAILY DOSE: 75 MILLIGRAM
     Route: 048
     Dates: start: 20130321
  3. ASPIRIN [Concomitant]
     Active Substance: ASPIRIN
     Dosage: 100MG C/24H?DAILY DOSE: 100 MILLIGRAM
     Route: 048
     Dates: start: 20110322
  4. ATORVASTATINA ABEX [Concomitant]
     Dosage: EVERY 24H
     Route: 048
     Dates: start: 20110523
  5. ENALAPRIL MALEATE [Concomitant]
     Active Substance: ENALAPRIL MALEATE
     Dosage: DAILY DOSE: 5 MILLIGRAM
     Route: 048
     Dates: start: 20110606
  6. ISOPHANE INSULIN [Concomitant]
     Active Substance: INSULIN NOS
     Dosage: 100 IU/ML IN A VIAL /24H
     Route: 058
     Dates: start: 20171026
  7. LIORESAL [Concomitant]
     Active Substance: BACLOFEN
     Route: 048
     Dates: start: 20040709
  8. LEVETIRACETAM ALTER [Concomitant]
     Route: 048
     Dates: start: 20120222
  9. Metformina Aurovitas Spain [Concomitant]
     Route: 048
     Dates: start: 20180717
  10. OMEPRAZOL ARISTO [Concomitant]
     Dosage: DAILY DOSE: 20 MILLIGRAM
     Route: 048
     Dates: start: 20110225
  11. FERROUS SULFATE [Concomitant]
     Active Substance: FERROUS SULFATE
     Dosage: DAILY DOSE: 80 MILLIGRAM
     Route: 048
     Dates: start: 20211220

REACTIONS (1)
  - Inappropriate antidiuretic hormone secretion [Recovered/Resolved]

NARRATIVE: CASE EVENT DATE: 20221001
